FAERS Safety Report 5500212-X (Version None)
Quarter: 2007Q4

REPORT INFORMATION
  Report Type: 
  Country: None (occurrence: None)
  Receive Date: 20071025
  Receipt Date: 20071009
  Transmission Date: 20080405
  Serious: Yes (Hospitalization)
  Sender: FDA-Public Use
  Company Number: DSA_61771_2007

PATIENT
  Age: 42 Year
  Sex: Male
  Weight: 51 kg

DRUGS (7)
  1. DIASTAT [Suspect]
     Indication: GRAND MAL CONVULSION
     Dosage: (10 MG FOR SEIZURES MORE THAN TWO MINUTES RECTAL)
     Route: 054
     Dates: start: 20060207, end: 20070806
  2. CARBAMAZEPINE [Concomitant]
  3. VALPROIC ACID [Concomitant]
  4. LEVOTHYROXINE SODIUM [Concomitant]
  5. METOCLOPRAMIDE [Concomitant]
  6. OMEPRAZOLE [Concomitant]
  7. FERROUS SULFATE TAB [Concomitant]

REACTIONS (5)
  - BLOOD PRESSURE DECREASED [None]
  - BLOOD SODIUM DECREASED [None]
  - CARDIO-RESPIRATORY ARREST [None]
  - LETHARGY [None]
  - OXYGEN SATURATION DECREASED [None]
